FAERS Safety Report 22324585 (Version 1)
Quarter: 2023Q2

REPORT INFORMATION
  Report Type: Spontaneous
  Country: CH (occurrence: CH)
  Receive Date: 20230516
  Receipt Date: 20230516
  Transmission Date: 20230722
  Serious: Yes (Other)
  Sender: FDA-Public Use
  Company Number: CH-SUN PHARMACEUTICAL INDUSTRIES LTD-2022RR-377320

PATIENT
  Sex: Male

DRUGS (1)
  1. LOPERAMIDE [Suspect]
     Active Substance: LOPERAMIDE
     Indication: Abdominal discomfort
     Dosage: 50 DOSAGE FORM, DAILY
     Route: 048

REACTIONS (2)
  - Substance abuse [Unknown]
  - Drug dependence [Unknown]
